FAERS Safety Report 6856852-9 (Version None)
Quarter: 2010Q3

REPORT INFORMATION
  Report Type: 
  Country: None (occurrence: None)
  Receive Date: 20100719
  Receipt Date: 20100713
  Transmission Date: 20110219
  Serious: Yes (Hospitalization)
  Sender: FDA-Public Use
  Company Number: CO-SANOFI-AVENTIS-2010SA041390

PATIENT
  Age: 73 Year
  Sex: Female

DRUGS (3)
  1. INSULIN GLULISINE [Suspect]
     Indication: DIABETES MELLITUS
     Dosage: 5IU/8IU/8IU
     Route: 058
     Dates: start: 20100301, end: 20100620
  2. LANTUS [Concomitant]
     Indication: DIABETES MELLITUS
     Route: 058
     Dates: start: 20060101
  3. LOSARTAN POSTASSIUM [Concomitant]
     Indication: HYPERTENSION
     Route: 048

REACTIONS (3)
  - HYPERHIDROSIS [None]
  - LOSS OF CONSCIOUSNESS [None]
  - SYNCOPE [None]
